FAERS Safety Report 7774912-5 (Version None)
Quarter: 2011Q3

REPORT INFORMATION
  Report Type: 
  Country: None (occurrence: None)
  Receive Date: 20110923
  Receipt Date: 20110920
  Transmission Date: 20111222
  Serious: Yes (Other)
  Sender: FDA-Public Use
  Company Number: JP-PFIZER INC-2011169156

PATIENT
  Age: 38 Year
  Sex: Female

DRUGS (5)
  1. OXYCODONE [Concomitant]
     Dosage: UNK
  2. LYRICA [Suspect]
     Indication: PAIN
     Dosage: 25 MG, 2X/DAY
  3. FENTANYL [Concomitant]
     Dosage: UNK
  4. LYRICA [Suspect]
     Dosage: 50 MG, 2X/DAY
     Dates: start: 20110301, end: 20110303
  5. CELECOXIB [Concomitant]
     Dosage: UNK

REACTIONS (2)
  - LOSS OF CONSCIOUSNESS [None]
  - FALL [None]
